FAERS Safety Report 9284589 (Version 1)
Quarter: 2013Q2

REPORT INFORMATION
  Report Type: Spontaneous
  Country: JO (occurrence: JO)
  Receive Date: 20130512
  Receipt Date: 20130512
  Transmission Date: 20140414
  Serious: Yes (Hospitalization, Other)
  Sender: FDA-Public Use
  Company Number: PHHY2013JO045901

PATIENT
  Age: 27 Year
  Sex: Male

DRUGS (1)
  1. TASIGNA [Suspect]
     Indication: CHRONIC MYELOID LEUKAEMIA
     Dosage: 200 MG, BID
     Route: 048
     Dates: end: 20130501

REACTIONS (3)
  - Chronic myeloid leukaemia transformation [Not Recovered/Not Resolved]
  - Infection [Unknown]
  - Cough [Not Recovered/Not Resolved]
